FAERS Safety Report 9895484 (Version 1)
Quarter: 2014Q1

REPORT INFORMATION
  Report Type: Spontaneous
  Country: US (occurrence: US)
  Receive Date: 20140213
  Receipt Date: 20140213
  Transmission Date: 20141002
  Serious: No
  Sender: FDA-Public Use
  Company Number: US-BRISTOL-MYERS SQUIBB COMPANY-19406263

PATIENT
  Age: 58 Year
  Sex: Female
  Weight: 99.77 kg

DRUGS (11)
  1. ABATACEPT SUBQ INJECTION 125MG/ML [Suspect]
     Indication: RHEUMATOID ARTHRITIS
  2. PLAQUENIL [Concomitant]
  3. METHOTREXATE [Concomitant]
  4. SYNTHROID [Concomitant]
  5. METFORMIN [Concomitant]
  6. ACYCLOVIR [Concomitant]
  7. FOLIC ACID [Concomitant]
  8. IBUPROFEN [Concomitant]
  9. PROZAC [Concomitant]
  10. MIRAPEX [Concomitant]
  11. ZETIA [Concomitant]

REACTIONS (1)
  - Pain [Unknown]
